FAERS Safety Report 21669035 (Version 1)
Quarter: 2022Q4

REPORT INFORMATION
  Report Type: Spontaneous
  Country: CN (occurrence: CN)
  Receive Date: 20221201
  Receipt Date: 20221201
  Transmission Date: 20230112
  Serious: Yes (Other)
  Sender: FDA-Public Use
  Company Number: CN-PFIZER INC-PV202200113865

PATIENT
  Age: 9 Year
  Sex: Male

DRUGS (2)
  1. MEDROL [Suspect]
     Active Substance: METHYLPREDNISOLONE
     Indication: Nephrotic syndrome
     Dosage: 28 MG, 1X/DAY
     Route: 048
     Dates: start: 20220814, end: 20221121
  2. MEDROL [Suspect]
     Active Substance: METHYLPREDNISOLONE
     Indication: Glomerulonephritis

REACTIONS (2)
  - Ocular hypertension [Recovering/Resolving]
  - Ocular hyperaemia [Recovering/Resolving]

NARRATIVE: CASE EVENT DATE: 20221118
